FAERS Safety Report 9188981 (Version 6)
Quarter: 2013Q3

REPORT INFORMATION
  Report Type: Spontaneous
  Country: US (occurrence: US)
  Receive Date: 20130326
  Receipt Date: 20130919
  Transmission Date: 20140515
  Serious: No
  Sender: FDA-Public Use
  Company Number: US-009507513-1303USA011660

PATIENT
  Age: 54 Year
  Sex: Male

DRUGS (6)
  1. REBETOL [Suspect]
     Indication: CHRONIC HEPATITIS C
     Dosage: 800 MG DAILY
     Route: 048
     Dates: start: 20130111
  2. REBETOL [Suspect]
     Dosage: 400 MG PER DAY
     Route: 048
  3. REBETOL [Suspect]
     Dosage: 600 MG , DAILY
     Route: 048
     Dates: end: 20130725
  4. PEGASYS [Suspect]
     Indication: HEPATITIS C
     Dosage: 180 MICROGRAM, PROCLICK INJECTION, QW
     Dates: start: 20130111, end: 20130725
  5. VICTRELIS [Suspect]
     Indication: HEPATITIS C
     Dosage: UNK
     Route: 048
     Dates: start: 20130208, end: 20130725
  6. NEUPOGEN [Concomitant]
     Dosage: UNK
     Dates: end: 20130708

REACTIONS (9)
  - Weight decreased [Recovering/Resolving]
  - Decreased appetite [Recovering/Resolving]
  - Depression [Unknown]
  - Fatigue [Unknown]
  - Dyspnoea [Recovering/Resolving]
  - Dizziness [Recovering/Resolving]
  - White blood cell count decreased [Recovered/Resolved]
  - Weight increased [Unknown]
  - Anaemia [Unknown]
